FAERS Safety Report 10375345 (Version 1)
Quarter: 2014Q1

REPORT INFORMATION
  Report Type: Spontaneous
  Country: US (occurrence: None)
  Receive Date: 20140306
  Receipt Date: 20140306
  Transmission Date: 20141002
  Serious: Yes (Hospitalization)
  Sender: FDA-Public Use
  Company Number: 163-21880-13041493

PATIENT
  Age: 79 Year
  Sex: Male

DRUGS (2)
  1. REVLIMID (LENALIDOMIDE) (5 MILLIGRAM, CAPSULES) [Suspect]
     Indication: MYELODYSPLASTIC SYNDROME
     Route: 048
     Dates: start: 20130208
  2. PROCRIT (ERYTHROPOIETIN) [Concomitant]

REACTIONS (4)
  - Full blood count decreased [None]
  - Rash [None]
  - Generalised oedema [None]
  - Constipation [None]
